FAERS Safety Report 21384628 (Version 1)
Quarter: 2022Q3

REPORT INFORMATION
  Report Type: Spontaneous
  Country: US (occurrence: None)
  Receive Date: 20220928
  Receipt Date: 20220928
  Transmission Date: 20221026
  Serious: Yes (Hospitalization)
  Sender: FDA-Public Use
  Company Number: US-ROCHE-3186698

PATIENT
  Age: 20 Year
  Sex: Female
  Weight: 56.750 kg

DRUGS (11)
  1. XOLAIR [Suspect]
     Active Substance: OMALIZUMAB
     Indication: Urticaria chronic
     Dosage: 1 INJECTION OF 150MG EACH ARM, ONGOING: NO
     Route: 058
     Dates: start: 20220305, end: 20220730
  2. XOLAIR [Suspect]
     Active Substance: OMALIZUMAB
  3. ELIQUIS [Concomitant]
     Active Substance: APIXABAN
     Route: 048
     Dates: start: 20220820
  4. FLORINEF ACETATE [Concomitant]
     Active Substance: FLUDROCORTISONE ACETATE
     Indication: Postural orthostatic tachycardia syndrome
     Route: 048
     Dates: start: 201711
  5. LAMICTAL [Concomitant]
     Active Substance: LAMOTRIGINE
     Indication: Visual snow syndrome
     Route: 048
     Dates: start: 201905
  6. ZYRTEC [Concomitant]
     Active Substance: CETIRIZINE HYDROCHLORIDE
     Indication: Mast cell activation syndrome
     Route: 048
     Dates: start: 201702
  7. TRETINOIN [Concomitant]
     Active Substance: TRETINOIN
     Indication: Acne
     Route: 061
     Dates: start: 202102
  8. VITAMINS [Concomitant]
     Active Substance: VITAMINS
     Route: 048
     Dates: start: 201804
  9. CALCIUM CITRATE [Concomitant]
     Active Substance: CALCIUM CITRATE
     Route: 048
  10. GELATIN [Concomitant]
     Active Substance: GELATIN
  11. DIAZEPAM [Concomitant]
     Active Substance: DIAZEPAM

REACTIONS (8)
  - Deep vein thrombosis [Not Recovered/Not Resolved]
  - Intervertebral disc protrusion [Recovered/Resolved]
  - Pain in extremity [Unknown]
  - Anxiety [Unknown]
  - Hypoaesthesia [Unknown]
  - Rash [Unknown]
  - Swelling [Unknown]
  - Tenderness [Unknown]

NARRATIVE: CASE EVENT DATE: 20220805
